FAERS Safety Report 6760486-4 (Version None)
Quarter: 2010Q2

REPORT INFORMATION
  Report Type: 
  Country: None (occurrence: None)
  Receive Date: 20100608
  Receipt Date: 20100601
  Transmission Date: 20101027
  Serious: Yes (Death, Hospitalization)
  Sender: FDA-Public Use
  Company Number: US-SANOFI-AVENTIS-2010SA031871

PATIENT
  Age: 66 Year
  Sex: Male

DRUGS (13)
  1. TAXOTERE [Suspect]
     Indication: PROSTATE CANCER
     Route: 051
     Dates: start: 20100510, end: 20100510
  2. BLINDED THERAPY [Suspect]
     Indication: PROSTATE CANCER
     Route: 048
     Dates: start: 20100510
  3. PREDNISONE [Suspect]
     Indication: PROSTATE CANCER
     Route: 048
     Dates: start: 20100510
  4. DEXAMETHASONE [Suspect]
     Indication: PREMEDICATION
     Route: 065
  5. NAPROSYN [Concomitant]
  6. BUMETANIDE [Concomitant]
  7. WARFARIN SODIUM [Concomitant]
  8. TERAZOSIN HCL [Concomitant]
  9. SIMVASTATIN [Concomitant]
  10. BENAZEPRIL HYDROCHLORIDE [Concomitant]
  11. DIGOXIN [Concomitant]
  12. COMPAZINE [Concomitant]
  13. KLOR-CON [Concomitant]

REACTIONS (1)
  - FEBRILE NEUTROPENIA [None]
